FAERS Safety Report 6376906-3 (Version None)
Quarter: 2009Q3

REPORT INFORMATION
  Report Type: 
  Country: None (occurrence: None)
  Receive Date: 20090925
  Receipt Date: 20090918
  Transmission Date: 20100115
  Serious: Yes (Hospitalization, Other)
  Sender: FDA-Public Use
  Company Number: US-ASTRAZENECA-2007UW03808

PATIENT
  Age: 45 Year
  Sex: Male

DRUGS (18)
  1. SEROQUEL [Suspect]
     Indication: DEPRESSION
     Dosage: 100 MG - 150 MG
     Route: 048
     Dates: start: 20020101
  2. SEROQUEL [Suspect]
     Dosage: 100-200 MG
     Route: 048
     Dates: start: 20060927, end: 20080114
  3. SEROQUEL [Suspect]
     Route: 048
     Dates: start: 20080310
  4. GABAPENTIN [Concomitant]
     Dosage: 800-1600 MG
     Route: 048
     Dates: start: 20060927
  5. REMERON [Concomitant]
     Indication: DEPRESSION
     Dosage: 30-50 MG
     Route: 048
     Dates: start: 20061030
  6. LISINOPRIL [Concomitant]
     Route: 048
     Dates: start: 20060927
  7. PLAVIX [Concomitant]
     Route: 048
     Dates: start: 20060927
  8. ASPIRIN [Concomitant]
     Route: 048
     Dates: start: 20060927
  9. TRICOR [Concomitant]
     Route: 048
     Dates: start: 20060927
  10. METOPROLOL [Concomitant]
     Route: 048
     Dates: start: 20060927
  11. ALBUTEROL [Concomitant]
     Dosage: TWO PUFFS EVERY FOUR HOURS AS NEEDED
     Dates: start: 20060927
  12. COMPAZINE [Concomitant]
     Dates: start: 20060927
  13. GLYBURIDE [Concomitant]
     Route: 048
     Dates: start: 20060927
  14. PREDNISONE TAB [Concomitant]
     Dosage: 60 MG DAILY FOR 3 DAYS, 40 MG DAILY FOR 3 DAYS, 20 MG DAILY FOR 3 DAYS, THEN DISCONTINUE
     Dates: start: 20060927
  15. XANAX [Concomitant]
     Indication: DEPRESSION
     Dosage: 0.5-4 MG
     Route: 048
     Dates: start: 20060927, end: 20090101
  16. NAPROXEN [Concomitant]
     Dates: start: 20061030
  17. NITROGLYCERIN [Concomitant]
     Dates: start: 20061204
  18. DIAZEPAM [Concomitant]
     Indication: DEPRESSION
     Dosage: 2 MG - 50 MG
     Dates: start: 19900101, end: 20090101

REACTIONS (6)
  - CORONARY ARTERY DISEASE [None]
  - HYPERGLYCAEMIA [None]
  - PNEUMONIA [None]
  - SLEEP APNOEA SYNDROME [None]
  - STENT PLACEMENT [None]
  - TYPE 2 DIABETES MELLITUS [None]
